FAERS Safety Report 6885921-2 (Version None)
Quarter: 2010Q3

REPORT INFORMATION
  Report Type: 
  Country: None (occurrence: None)
  Receive Date: 20100729
  Receipt Date: 20081004
  Transmission Date: 20110219
  Serious: Yes (Other)
  Sender: FDA-Public Use
  Company Number: US-PFIZER INC-2008083602

PATIENT
  Sex: Female
  Weight: 82 kg

DRUGS (7)
  1. CELEBREX [Suspect]
     Indication: INTERVERTEBRAL DISC PROTRUSION
     Dates: start: 19970101
  2. CELEBREX [Suspect]
     Indication: ARTHRALGIA
  3. BACTRIM [Suspect]
  4. METHADONE HCL [Concomitant]
  5. SOMA [Concomitant]
  6. HYDROCODONE BITARTRATE [Concomitant]
  7. XANAX [Concomitant]
     Dosage: AT BEDTIME

REACTIONS (3)
  - FALL [None]
  - ROAD TRAFFIC ACCIDENT [None]
  - SWELLING [None]
